FAERS Safety Report 20228276 (Version 1)
Quarter: 2021Q4

REPORT INFORMATION
  Report Type: Spontaneous
  Country: CN (occurrence: None)
  Receive Date: 20211224
  Receipt Date: 20211224
  Transmission Date: 20220303
  Serious: Yes (Hospitalization, Other)
  Sender: FDA-Public Use
  Company Number: 2021A892798

PATIENT
  Age: 3997 Week
  Sex: Male
  Weight: 75 kg

DRUGS (3)
  1. ESOMEPRAZOLE SODIUM [Suspect]
     Active Substance: ESOMEPRAZOLE SODIUM
     Indication: Upper gastrointestinal haemorrhage
     Route: 042
     Dates: start: 20211118, end: 20211118
  2. ESOMEPRAZOLE SODIUM [Suspect]
     Active Substance: ESOMEPRAZOLE SODIUM
     Indication: Upper gastrointestinal haemorrhage
     Route: 042
     Dates: start: 20211118, end: 20211120
  3. OMEPRAZOLE SODIUM [Suspect]
     Active Substance: OMEPRAZOLE SODIUM
     Indication: Upper gastrointestinal haemorrhage
     Route: 042
     Dates: start: 20211120, end: 20211122

REACTIONS (2)
  - Chronic kidney disease [Recovering/Resolving]
  - Gouty arthritis [Recovering/Resolving]

NARRATIVE: CASE EVENT DATE: 20211120
